FAERS Safety Report 7866361-6 (Version None)
Quarter: 2011Q4

REPORT INFORMATION
  Report Type: 
  Country: None (occurrence: None)
  Receive Date: 20111028
  Receipt Date: 20110603
  Transmission Date: 20120403
  Serious: No
  Sender: FDA-Public Use
  Company Number: US-GLAXOSMITHKLINE-A0930184A

PATIENT
  Age: 51 Year
  Sex: Female

DRUGS (12)
  1. MOTRIN [Concomitant]
  2. LYRICA [Concomitant]
  3. SPIRIVA [Suspect]
     Indication: EMPHYSEMA
     Dosage: 1PUFF PER DAY
     Route: 065
     Dates: start: 20090129, end: 20110101
  4. CIMETIDINE [Concomitant]
  5. ADVAIR DISKUS 100/50 [Suspect]
     Indication: CHRONIC OBSTRUCTIVE PULMONARY DISEASE
     Dosage: 1PUFF TWICE PER DAY
     Route: 055
     Dates: start: 20090129, end: 20110101
  6. TRAZODONE HYDROCHLORIDE [Concomitant]
  7. ZOLOFT [Concomitant]
  8. OXYGEN [Concomitant]
  9. BUSPAR [Concomitant]
  10. ATARAX [Concomitant]
  11. LUNESTA [Concomitant]
  12. AMBIEN [Concomitant]

REACTIONS (11)
  - NECK PAIN [None]
  - PAIN IN JAW [None]
  - AXILLARY PAIN [None]
  - EYE PAIN [None]
  - MUSCULOSKELETAL PAIN [None]
  - SWELLING FACE [None]
  - MUSCLE SPASMS [None]
  - FACIAL PAIN [None]
  - MYALGIA [None]
  - MUSCULOSKELETAL DISORDER [None]
  - MUSCLE CONTRACTURE [None]
